FAERS Safety Report 9835919 (Version 1)
Quarter: 2014Q1

REPORT INFORMATION
  Report Type: Spontaneous
  Country: CA (occurrence: CA)
  Receive Date: 20140122
  Receipt Date: 20140122
  Transmission Date: 20141002
  Serious: Yes (Hospitalization, Other)
  Sender: FDA-Public Use
  Company Number: CA-PFIZER INC-2014015647

PATIENT
  Age: 12 Year
  Sex: Male

DRUGS (3)
  1. RIFAMPIN [Suspect]
     Indication: TUBERCULOSIS
     Dosage: 600 MG, DAILY
  2. ETHAMBUTOL [Suspect]
     Indication: TUBERCULOSIS
     Dosage: 800 MG, DAILY
  3. PYRAZINAMIDE [Suspect]
     Indication: TUBERCULOSIS
     Dosage: 1 G, DAILY

REACTIONS (1)
  - Drug reaction with eosinophilia and systemic symptoms [Recovered/Resolved]
